FAERS Safety Report 7332225-X (Version None)
Quarter: 2011Q1

REPORT INFORMATION
  Report Type: 
  Country: None (occurrence: None)
  Receive Date: 20110304
  Receipt Date: 20110225
  Transmission Date: 20110831
  Serious: Yes (Other)
  Sender: FDA-Public Use
  Company Number: CN-ABBOTT-11P-035-0707879-00

PATIENT
  Age: 79 Year
  Sex: Male

DRUGS (2)
  1. LEVOTHYROXINE [Suspect]
  2. LEVOTHYROXINE [Suspect]
     Indication: HYPOTHYROIDISM

REACTIONS (2)
  - HYPOPITUITARISM [None]
  - ADRENOCORTICAL INSUFFICIENCY ACUTE [None]
